FAERS Safety Report 23198542 (Version 1)
Quarter: 2023Q4

REPORT INFORMATION
  Report Type: Report from Study
  Country: US (occurrence: US)
  Receive Date: 20231117
  Receipt Date: 20231117
  Transmission Date: 20240109
  Serious: Yes (Death)
  Sender: FDA-Public Use
  Company Number: US-BAYER-2023A165204

PATIENT
  Age: 83 Year
  Sex: Female
  Weight: 80.726 kg

DRUGS (21)
  1. ADEMPAS [Suspect]
     Active Substance: RIOCIGUAT
     Indication: Pulmonary arterial hypertension
     Dosage: UNK
     Dates: start: 20231009
  2. ADEMPAS [Suspect]
     Active Substance: RIOCIGUAT
     Indication: Pulmonary arterial hypertension
     Dosage: 2.5 MG, TID
     Route: 048
  3. TYVASO [Concomitant]
     Active Substance: TREPROSTINIL
  4. JARDIANCE [Concomitant]
     Active Substance: EMPAGLIFLOZIN
  5. OPSUMIT [Concomitant]
     Active Substance: MACITENTAN
  6. PANTOPRAZOLE [Concomitant]
     Active Substance: PANTOPRAZOLE
  7. ATORVASTATIN CALCIUM [Concomitant]
     Active Substance: ATORVASTATIN CALCIUM
  8. CLOPIDOGREL [Concomitant]
     Active Substance: CLOPIDOGREL BISULFATE
  9. ELIQUIS [Concomitant]
     Active Substance: APIXABAN
  10. GABAPENTIN [Concomitant]
     Active Substance: GABAPENTIN
  11. ALBUTEROL SULFATE [Concomitant]
     Active Substance: ALBUTEROL SULFATE
  12. FLONASE ALLERGY RELIEF [Concomitant]
     Active Substance: FLUTICASONE PROPIONATE
  13. METOPROLOL SUCCINATE [Concomitant]
     Active Substance: METOPROLOL SUCCINATE
  14. OXYGEN [Concomitant]
     Active Substance: OXYGEN
  15. LACTULOSE [Concomitant]
     Active Substance: LACTULOSE
  16. SENNA [Concomitant]
     Active Substance: SENNA LEAF\SENNOSIDES\SENNOSIDES A AND B
  17. ACETAMINOPHEN [Concomitant]
     Active Substance: ACETAMINOPHEN
  18. POLYETHYLENE GLYCOLS [Concomitant]
     Active Substance: POLYETHYLENE GLYCOLS
  19. FEBUXOSTAT [Concomitant]
     Active Substance: FEBUXOSTAT
  20. TORSEMIDE [Concomitant]
     Active Substance: TORSEMIDE
  21. FLOVENT [Concomitant]
     Active Substance: FLUTICASONE PROPIONATE

REACTIONS (1)
  - Death [Fatal]

NARRATIVE: CASE EVENT DATE: 20231112
